FAERS Safety Report 17001777 (Version 1)
Quarter: 2019Q4

REPORT INFORMATION
  Report Type: Spontaneous
  Country: FR (occurrence: FR)
  Receive Date: 20191106
  Receipt Date: 20191106
  Transmission Date: 20200122
  Serious: Yes (Hospitalization, Other)
  Sender: FDA-Public Use
  Company Number: FR-US-PROVELL PHARMACEUTICALS LLC-9017497

PATIENT
  Age: 23 Year
  Sex: Male

DRUGS (1)
  1. LEVOTHYROX NF [Suspect]
     Active Substance: LEVOTHYROXINE SODIUM
     Indication: HYPOTHYROIDISM

REACTIONS (24)
  - Tremor [Unknown]
  - Blood thyroid stimulating hormone increased [Unknown]
  - Diarrhoea [Unknown]
  - Anger [Unknown]
  - Fatigue [Unknown]
  - Affect lability [Unknown]
  - Dizziness [Unknown]
  - Impaired work ability [Unknown]
  - Monocyte count increased [Unknown]
  - Mood swings [Unknown]
  - Hospitalisation [Unknown]
  - Tension [Unknown]
  - Dysstasia [Unknown]
  - Neutrophil count increased [Unknown]
  - C-reactive protein increased [Unknown]
  - Asthenia [Unknown]
  - Insomnia [Unknown]
  - Headache [Unknown]
  - Depression [Unknown]
  - Haematocrit increased [Unknown]
  - Diabetes mellitus inadequate control [Unknown]
  - Malaise [Unknown]
  - White blood cell count increased [Unknown]
  - Gastrointestinal disorder [Unknown]

NARRATIVE: CASE EVENT DATE: 20170106
